FAERS Safety Report 5166045-1 (Version None)
Quarter: 2006Q4

REPORT INFORMATION
  Report Type: 
  Country: None (occurrence: None)
  Receive Date: 20061128
  Receipt Date: 20061113
  Transmission Date: 20070319
  Serious: Yes (Other)
  Sender: FDA-Public Use
  Company Number: S06-USA-04796-01

PATIENT
  Age: 68 Year
  Sex: Male
  Weight: 85.2762 kg

DRUGS (2)
  1. THYROID TAB [Suspect]
     Indication: HYPOTHYROIDISM
     Dosage: 120 MG QD PO
     Route: 048
     Dates: start: 19780501, end: 20060929
  2. THYROID TAB [Suspect]
     Indication: HYPOTHYROIDISM
     Dosage: 120 MG QD PO
     Route: 048
     Dates: start: 20061002, end: 20061108

REACTIONS (11)
  - BLOOD PRESSURE INCREASED [None]
  - DRUG DOSE OMISSION [None]
  - EXTRASYSTOLES [None]
  - HYPERSENSITIVITY [None]
  - PHARMACEUTICAL PRODUCT COMPLAINT [None]
  - PHARYNGEAL OEDEMA [None]
  - SALIVARY HYPERSECRETION [None]
  - STOMATITIS [None]
  - SWOLLEN TONGUE [None]
  - WEIGHT ABNORMAL [None]
  - WEIGHT DECREASED [None]
